FAERS Safety Report 4580539-9 (Version None)
Quarter: 2005Q1

REPORT INFORMATION
  Report Type: 
  Country: None (occurrence: None)
  Receive Date: 20050127
  Receipt Date: 20041201
  Transmission Date: 20050727
  Serious: No
  Sender: FDA-Public Use
  Company Number: USA040875663

PATIENT
  Age: 8 Year
  Sex: Female
  Weight: 29 kg

DRUGS (2)
  1. STRATTERA [Suspect]
     Indication: ATTENTION DEFICIT/HYPERACTIVITY DISORDER
     Dosage: 40 MG
     Dates: start: 20040811
  2. ADDERALL XR 25 [Concomitant]

REACTIONS (15)
  - AGGRESSION [None]
  - CRYING [None]
  - DECREASED APPETITE [None]
  - DRUG INEFFECTIVE [None]
  - EMOTIONAL DISORDER [None]
  - EMOTIONAL DISTRESS [None]
  - FATIGUE [None]
  - MEMORY IMPAIRMENT [None]
  - NIGHTMARE [None]
  - RASH [None]
  - RHINORRHOEA [None]
  - SINUSITIS [None]
  - SLEEP TALKING [None]
  - SOMNOLENCE [None]
  - WEIGHT DECREASED [None]
